FAERS Safety Report 17107239 (Version 1)
Quarter: 2019Q4

REPORT INFORMATION
  Report Type: Spontaneous
  Country: US (occurrence: US)
  Receive Date: 20191203
  Receipt Date: 20191203
  Transmission Date: 20200122
  Serious: Yes (Hospitalization, Other)
  Sender: FDA-Public Use
  Company Number: US-MYLANLABS-2019M1115206

PATIENT
  Sex: Female
  Weight: 68 kg

DRUGS (3)
  1. MAPROTILINE HYDROCHLORIDE. [Concomitant]
     Active Substance: MAPROTILINE HYDROCHLORIDE
     Dosage: UNK
  2. MIRTAZAPINE. [Suspect]
     Active Substance: MIRTAZAPINE
     Indication: ANTIDEPRESSANT THERAPY
     Dosage: UNK
     Route: 048
     Dates: end: 2013
  3. MIRTAZAPINE. [Suspect]
     Active Substance: MIRTAZAPINE
     Dosage: UNK
     Route: 048
     Dates: start: 201302, end: 2014

REACTIONS (4)
  - Impaired work ability [Recovered/Resolved]
  - Suicidal ideation [Recovered/Resolved]
  - Abnormal behaviour [Recovered/Resolved]
  - Loss of personal independence in daily activities [Recovered/Resolved]

NARRATIVE: CASE EVENT DATE: 2014
